FAERS Safety Report 16239142 (Version 1)
Quarter: 2019Q2

REPORT INFORMATION
  Report Type: Spontaneous
  Country: US (occurrence: US)
  Receive Date: 20190424
  Receipt Date: 20190424
  Transmission Date: 20190711
  Serious: Yes (Other)
  Sender: FDA-Public Use
  Company Number: None

PATIENT
  Age: 54 Year
  Sex: Female
  Weight: 119.7 kg

DRUGS (2)
  1. SUBUTEX [Suspect]
     Active Substance: BUPRENORPHINE HYDROCHLORIDE
     Indication: PAIN
     Dosage: ?          QUANTITY:3 TABLET(S);?
     Route: 060
     Dates: start: 20190207, end: 20190424
  2. SUBOXONE [Suspect]
     Active Substance: BUPRENORPHINE HYDROCHLORIDE\NALOXONE HYDROCHLORIDE

REACTIONS (5)
  - Blood pressure increased [None]
  - Glycosylated haemoglobin increased [None]
  - Palpitations [None]
  - Urinary incontinence [None]
  - Insomnia [None]

NARRATIVE: CASE EVENT DATE: 20190207
